FAERS Safety Report 13475474 (Version 1)
Quarter: 2017Q2

REPORT INFORMATION
  Report Type: Spontaneous
  Country: CH (occurrence: CH)
  Receive Date: 20170424
  Receipt Date: 20170424
  Transmission Date: 20170830
  Serious: Yes (Hospitalization, Disabling)
  Sender: FDA-Public Use
  Company Number: CH-GILEAD-2017-0269095

PATIENT
  Age: 29 Year
  Sex: Male
  Weight: 86.3 kg

DRUGS (9)
  1. IRFEN [Concomitant]
     Active Substance: IBUPROFEN
     Indication: DRUG WITHDRAWAL SYNDROME
     Dosage: UNK
     Route: 048
     Dates: start: 20170317
  2. BACTRIM [Concomitant]
     Active Substance: SULFAMETHOXAZOLE\TRIMETHOPRIM
     Indication: PROPHYLAXIS
     Dosage: UNK
     Route: 048
     Dates: start: 20170321
  3. SERESTA [Concomitant]
     Active Substance: OXAZEPAM
     Indication: DRUG WITHDRAWAL SYNDROME
     Dosage: UNK
     Route: 048
     Dates: start: 20170317
  4. IMOVANE [Concomitant]
     Active Substance: ZOPICLONE
     Indication: DRUG WITHDRAWAL SYNDROME
     Dosage: UNK
     Route: 048
     Dates: start: 20170317
  5. GENVOYA [Suspect]
     Active Substance: COBICISTAT\ELVITEGRAVIR\EMTRICITABINE\TENOFOVIR ALAFENAMIDE FUMARATE
     Indication: ACUTE HEPATITIS C
     Dosage: 1 DF, QD
     Route: 048
     Dates: start: 20170324, end: 20170406
  6. SEVRE LONG [Concomitant]
     Indication: DRUG WITHDRAWAL SYNDROME
     Dosage: 400 MG, QD
     Route: 048
     Dates: start: 20170317
  7. PREZISTA [Suspect]
     Active Substance: DARUNAVIR ETHANOLATE
     Indication: ACUTE HIV INFECTION
     Dosage: 800 MG, QD
     Route: 048
     Dates: start: 20170324, end: 20170406
  8. DAFALGAN [Concomitant]
     Active Substance: ACETAMINOPHEN
     Indication: DRUG WITHDRAWAL SYNDROME
     Dosage: UNK
     Route: 048
     Dates: start: 20170317
  9. MYDOCALM                           /00293002/ [Concomitant]
     Active Substance: TOLPERISONE HYDROCHLORIDE

REACTIONS (1)
  - Drug withdrawal syndrome [Recovered/Resolved]

NARRATIVE: CASE EVENT DATE: 20170324
